FAERS Safety Report 8304386-7 (Version None)
Quarter: 2012Q2

REPORT INFORMATION
  Report Type: 
  Country: None (occurrence: None)
  Receive Date: 20120423
  Receipt Date: 20120410
  Transmission Date: 20120825
  Serious: No
  Sender: FDA-Public Use
  Company Number: DE-ELI_LILLY_AND_COMPANY-DE201201005089

PATIENT
  Age: 61 Year
  Sex: Female
  Weight: 66 kg

DRUGS (6)
  1. PROPAFENONE HCL [Concomitant]
     Indication: TACHYCARDIA
     Dosage: 150 DF, UNKNOWN
  2. FALITHROM [Concomitant]
     Indication: ATRIAL FIBRILLATION
  3. EMBOLEX [Concomitant]
  4. METOPROLOL TARTRATE [Concomitant]
     Indication: ATRIAL FIBRILLATION
     Dosage: 50 DF, UNKNOWN
  5. CYMBALTA [Suspect]
     Indication: DEPRESSION
     Dosage: 30 MG, BID
     Dates: start: 20071001
  6. DULOXETIME HYDROCHLORIDE [Suspect]
     Indication: DEPRESSION
     Dosage: 20 MG, UNK

REACTIONS (5)
  - BLOOD GLUCOSE INCREASED [None]
  - OFF LABEL USE [None]
  - ADVERSE EVENT [None]
  - GAMMA-GLUTAMYLTRANSFERASE INCREASED [None]
  - WEIGHT INCREASED [None]
